FAERS Safety Report 9462506 (Version 1)
Quarter: 2013Q3

REPORT INFORMATION
  Report Type: Spontaneous
  Country: US (occurrence: US)
  Receive Date: 20130816
  Receipt Date: 20130816
  Transmission Date: 20140515
  Serious: No
  Sender: FDA-Public Use
  Company Number: US-TEVA-426789USA

PATIENT
  Sex: Female

DRUGS (1)
  1. NUVIGIL [Suspect]
     Dates: start: 20120721

REACTIONS (1)
  - Feeling jittery [Unknown]
